FAERS Safety Report 7635923-3 (Version None)
Quarter: 2011Q3

REPORT INFORMATION
  Report Type: 
  Country: None (occurrence: None)
  Receive Date: 20110726
  Receipt Date: 20110720
  Transmission Date: 20111222
  Serious: Yes (Death, Hospitalization)
  Sender: FDA-Public Use
  Company Number: EG-SANOFI-AVENTIS-2011SA046916

PATIENT
  Age: 4 Day
  Sex: Male

DRUGS (1)
  1. INSULIN GLARGINE [Suspect]
     Indication: DIABETIC RELATIVE
     Route: 015

REACTIONS (2)
  - MATERNAL EXPOSURE DURING PREGNANCY [None]
  - DEATH [None]
